FAERS Safety Report 23725130 (Version 1)
Quarter: 2024Q2

REPORT INFORMATION
  Report Type: Spontaneous
  Country: US (occurrence: US)
  Receive Date: 20240410
  Receipt Date: 20240410
  Transmission Date: 20240716
  Serious: No
  Sender: FDA-Public Use
  Company Number: US-002147023-NVSC2024US075626

PATIENT
  Sex: Male

DRUGS (1)
  1. MEKINIST [Suspect]
     Active Substance: TRAMETINIB DIMETHYL SULFOXIDE
     Indication: Brain neoplasm malignant
     Dosage: UNK UNK, BID (2 TABLETS BY MOUTH DAILY ALTERNATING WITH 3 TABLETS DAILY)
     Route: 065
     Dates: start: 202402

REACTIONS (1)
  - Rash [Unknown]
